FAERS Safety Report 13011222 (Version 1)
Quarter: 2016Q4

REPORT INFORMATION
  Report Type: Report from Study
  Country: US (occurrence: US)
  Receive Date: 20161208
  Receipt Date: 20161208
  Transmission Date: 20170207
  Serious: Yes (Hospitalization)
  Sender: FDA-Public Use
  Company Number: US-ROCHE-1861255

PATIENT
  Age: 77 Year
  Sex: Male
  Weight: 76.18 kg

DRUGS (29)
  1. SOLU-CORTEF [Concomitant]
     Active Substance: HYDROCORTISONE SODIUM SUCCINATE
     Dosage: POSSIBLE RIGHT SIDED INFILTRATE
     Route: 065
     Dates: start: 20161108, end: 20161110
  2. DIPHENHYDRAMINE. [Concomitant]
     Active Substance: DIPHENHYDRAMINE
     Indication: PREMEDICATION
     Dosage: DOSE ADMINISTERED ONCE ON THE FOLLOWING DAYS 05/OCT/2016, 21/NOV/2016, 29/SEP/2016, 28/SEP/2016, 12/
     Route: 065
     Dates: start: 20160928, end: 20161121
  3. PREDNISONE. [Concomitant]
     Active Substance: PREDNISONE
     Route: 065
     Dates: start: 20161108, end: 20161112
  4. DEXAMETHASONE. [Concomitant]
     Active Substance: DEXAMETHASONE
     Indication: PREMEDICATION
     Dosage: DOSE ADMINISTERED ONCE ON THE FOLLOWING DAYS 05/OCT/2016, 21/NOV/2016, 29/SEP/2016, 28/SEP/2016, 12/
     Route: 065
     Dates: start: 20160928, end: 20161121
  5. DESMOPRESSIN ACETATE. [Concomitant]
     Active Substance: DESMOPRESSIN ACETATE
     Indication: THROMBOCYTOPENIA
     Route: 065
     Dates: start: 20121001
  6. CALCIUM CARBONATE. [Concomitant]
     Active Substance: CALCIUM CARBONATE
     Indication: GASTROOESOPHAGEAL REFLUX DISEASE
     Route: 065
     Dates: start: 20161128
  7. ATORVASTATIN [Concomitant]
     Active Substance: ATORVASTATIN
     Indication: HYPERLIPIDAEMIA
     Route: 065
     Dates: start: 20161127
  8. MAGNESIUM OXIDE. [Concomitant]
     Active Substance: MAGNESIUM OXIDE
     Indication: HYPOMAGNESAEMIA
     Route: 065
     Dates: start: 20161128
  9. VITAMIN D3 [Concomitant]
     Active Substance: CHOLECALCIFEROL
     Route: 065
     Dates: start: 20161128
  10. ACP-196 (BTK INHIBITOR) [Suspect]
     Active Substance: ACALABRUTINIB
     Indication: CHRONIC LYMPHOCYTIC LEUKAEMIA
     Route: 048
     Dates: start: 20160831
  11. NORMAL SALINE [Concomitant]
     Active Substance: SODIUM CHLORIDE
     Route: 042
     Dates: start: 20161026
  12. SIMVASTATIN. [Concomitant]
     Active Substance: SIMVASTATIN
     Indication: HYPERLIPIDAEMIA
     Route: 065
     Dates: start: 20121001
  13. HYDROCORTISONE. [Concomitant]
     Active Substance: HYDROCORTISONE
     Dosage: INDICATION: POSSIBLE RIGHT SIDED INFILTRATES/ADRENAL INSUFFICIENCY
     Route: 065
     Dates: start: 20161122
  14. CIALIS [Concomitant]
     Active Substance: TADALAFIL
     Indication: ERECTILE DYSFUNCTION
     Route: 065
     Dates: start: 20060926
  15. ACETAMINOPHEN. [Concomitant]
     Active Substance: ACETAMINOPHEN
     Indication: PREMEDICATION
     Dosage: DOSE ADMINISTERED ONCE ON THE FOLLOWING DAYS 12/OCT/2016, 21/NOV/2016, 28/SEP/2016, 29/SEP/2016, 5/O
     Route: 065
     Dates: start: 20160928, end: 20161121
  16. FAMOTIDINE. [Concomitant]
     Active Substance: FAMOTIDINE
     Indication: PREMEDICATION
     Dosage: DOSE ADMINISTERED ONCE ON THE FOLLOWING DAYS 21/NOV/2016,  26/OCT/2016
     Route: 065
     Dates: start: 20161026, end: 20161121
  17. TYLENOL [Concomitant]
     Active Substance: ACETAMINOPHEN
     Indication: PROPHYLAXIS
     Route: 065
     Dates: start: 20060926
  18. MUCINEX [Concomitant]
     Active Substance: GUAIFENESIN
     Indication: RHINITIS ALLERGIC
     Route: 065
     Dates: start: 20161011
  19. PREDNISONE. [Concomitant]
     Active Substance: PREDNISONE
     Route: 065
     Dates: start: 20161118
  20. ELIQUIS [Concomitant]
     Active Substance: APIXABAN
     Indication: ATRIAL FIBRILLATION
     Route: 065
     Dates: start: 20160802
  21. POTASSIUM CHLORIDE. [Concomitant]
     Active Substance: POTASSIUM CHLORIDE
     Indication: HYPOKALAEMIA
     Route: 065
     Dates: start: 20161128
  22. NORMAL SALINE [Concomitant]
     Active Substance: SODIUM CHLORIDE
     Indication: PREMEDICATION
     Dosage: DOSE ADMINISTERED ONCE ON THE FOLLOWING DAYS 12/OCT/2016, 26/OCT/2016,
     Route: 042
     Dates: start: 20161012, end: 20161026
  23. GRANISETRON [Concomitant]
     Active Substance: GRANISETRON
     Indication: PREMEDICATION
     Dosage: DOSE ADMINISTERED ONCE ON THE FOLLOWING DAYS 21/NOV/2016, 29/SEP/2016
     Route: 065
     Dates: start: 20161026, end: 20161121
  24. HYDROCORTISONE. [Concomitant]
     Active Substance: HYDROCORTISONE
     Dosage: INDICATION: ADRENAL INSUFFICIENCY
     Route: 065
     Dates: start: 20161001, end: 20161108
  25. VICODIN [Concomitant]
     Active Substance: ACETAMINOPHEN\HYDROCODONE BITARTRATE
     Indication: PAIN
     Route: 065
     Dates: start: 20060926
  26. FLORINEF ACETATE [Concomitant]
     Active Substance: FLUDROCORTISONE ACETATE
     Dosage: INDICATION: ADDISONS DISEASE
     Route: 065
  27. PREDNISONE. [Concomitant]
     Active Substance: PREDNISONE
     Dosage: INDICATION: POSSIBLE RIGHT SIDED INFILTRATES/ADRENAL INSUFFICIENCY
     Route: 065
     Dates: start: 20161113, end: 20161118
  28. OBINUTUZUMAB [Suspect]
     Active Substance: OBINUTUZUMAB
     Indication: CHRONIC LYMPHOCYTIC LEUKAEMIA
     Dosage: LAST INFUSION WAS 21/NOV/2016
     Route: 042
     Dates: start: 20160928
  29. LEVOFLOXACIN. [Concomitant]
     Active Substance: LEVOFLOXACIN
     Dosage: INDICATION: POSSIBLE RIGHT SIDED INFILTRATE
     Route: 065
     Dates: start: 20161108

REACTIONS (8)
  - Sepsis [None]
  - Hypoxia [Recovered/Resolved]
  - Respiratory distress [None]
  - Extrasystoles [None]
  - Bundle branch block left [None]
  - Diarrhoea [None]
  - Pneumonia [None]
  - Hypotension [None]

NARRATIVE: CASE EVENT DATE: 20161127
